FAERS Safety Report 19741561 (Version 2)
Quarter: 2021Q3

REPORT INFORMATION
  Report Type: Report from Study
  Country: BR (occurrence: BR)
  Receive Date: 20210824
  Receipt Date: 20210909
  Transmission Date: 20211014
  Serious: Yes (Other)
  Sender: FDA-Public Use
  Company Number: NVSC2021BR189658

PATIENT
  Sex: Male

DRUGS (2)
  1. COSENTYX [Suspect]
     Active Substance: SECUKINUMAB
     Indication: PSORIATIC ARTHROPATHY
     Dosage: UNK
     Route: 065
     Dates: start: 2018, end: 202106
  2. DEXAMETHASONE. [Suspect]
     Active Substance: DEXAMETHASONE
     Indication: PNEUMONIA
     Dosage: UNK
     Route: 065

REACTIONS (17)
  - Psoriasis [Unknown]
  - Blood creatine abnormal [Unknown]
  - Vitamin C decreased [Unknown]
  - Vitamin D decreased [Unknown]
  - Gait disturbance [Unknown]
  - Pustule [Unknown]
  - Skin exfoliation [Unknown]
  - Oxygen saturation abnormal [Unknown]
  - Inflammation [Unknown]
  - Blood glucose increased [Unknown]
  - Vitamin A decreased [Unknown]
  - Arthralgia [Unknown]
  - Dandruff [Unknown]
  - Decreased immune responsiveness [Unknown]
  - Lung disorder [Unknown]
  - Hepatic enzyme abnormal [Unknown]
  - Skin lesion [Unknown]
